FAERS Safety Report 16637485 (Version 2)
Quarter: 2019Q3

REPORT INFORMATION
  Report Type: Spontaneous
  Country: US (occurrence: US)
  Receive Date: 20190726
  Receipt Date: 20190809
  Transmission Date: 20191004
  Serious: No
  Sender: FDA-Public Use
  Company Number: US-JNJFOC-20190720062

PATIENT
  Sex: Female

DRUGS (2)
  1. ULTRAM [Suspect]
     Active Substance: TRAMADOL HYDROCHLORIDE
     Indication: BACK PAIN
     Dosage: 1 TABLET TWICE DAILY IF NEEDED
     Route: 048
     Dates: start: 20190112
  2. ADVIL [Suspect]
     Active Substance: IBUPROFEN
     Indication: BACK PAIN
     Dosage: TOOK TWO TABLETS WITH FOOD
     Route: 048

REACTIONS (2)
  - Pain [Not Recovered/Not Resolved]
  - Radiculopathy [Not Recovered/Not Resolved]
